FAERS Safety Report 20683712 (Version 9)
Quarter: 2025Q4

REPORT INFORMATION
  Report Type: Report from Study
  Country: BR (occurrence: BR)
  Receive Date: 20220407
  Receipt Date: 20251107
  Transmission Date: 20260117
  Serious: Yes (Hospitalization, Other)
  Sender: GLAXOSMITHKLINE
  Company Number: BR-GLAXOSMITHKLINE-BR2019AMR211784

PATIENT
  Age: 40 Year
  Sex: Female
  Weight: 57 kg

DRUGS (4)
  1. BELIMUMAB [Suspect]
     Active Substance: BELIMUMAB
     Indication: Systemic lupus erythematosus
     Dosage: 120 MG, MO (5 VIALS/BOXES)
  2. BELIMUMAB [Suspect]
     Active Substance: BELIMUMAB
     Dosage: UNK, 5X120 MG (EXCESSIVE DOSAGE)
  3. BELIMUMAB [Suspect]
     Active Substance: BELIMUMAB
     Dosage: 560 MG
  4. VANCOMYCIN [Suspect]
     Active Substance: VANCOMYCIN
     Indication: Surgery
     Dosage: UNK

REACTIONS (14)
  - Arterial disorder [Recovering/Resolving]
  - Headache [Recovered/Resolved]
  - Appendicectomy [Unknown]
  - COVID-19 [Recovered/Resolved]
  - SARS-CoV-2 test positive [Unknown]
  - Chest pain [Recovered/Resolved]
  - Drug hypersensitivity [Recovered/Resolved]
  - Procedural pain [Not Recovered/Not Resolved]
  - Herpes zoster [Recovered/Resolved]
  - Ill-defined disorder [Unknown]
  - Incorrect product administration duration [Unknown]
  - Inappropriate schedule of product administration [Unknown]
  - Product availability issue [Unknown]
  - Product dose omission issue [Unknown]

NARRATIVE: CASE EVENT DATE: 20200826
